FAERS Safety Report 11988583 (Version 1)
Quarter: 2016Q1

REPORT INFORMATION
  Report Type: Spontaneous
  Country: CA (occurrence: CA)
  Receive Date: 20160202
  Receipt Date: 20160202
  Transmission Date: 20160526
  Serious: Yes (Life-Threatening, Hospitalization, Disabling)
  Sender: FDA-Public Use
  Company Number: CA-TEVA-629688ACC

PATIENT
  Age: 68 Year
  Sex: Male
  Weight: 81.27 kg

DRUGS (2)
  1. HYDROCHLOROTHIAZIDE. [Suspect]
     Active Substance: HYDROCHLOROTHIAZIDE
     Indication: DIURETIC THERAPY
     Dosage: 25 MILLIGRAM DAILY;
     Route: 048
  2. APO FUROSEMIDE TAB 40MG [Suspect]
     Active Substance: FUROSEMIDE
     Indication: CARDIAC FAILURE CONGESTIVE
     Dosage: 40 MILLIGRAM DAILY;
     Route: 048

REACTIONS (2)
  - Medical induction of coma [Recovered/Resolved]
  - Cardiac failure congestive [Recovered/Resolved]
